FAERS Safety Report 20580370 (Version 2)
Quarter: 2022Q2

REPORT INFORMATION
  Report Type: Report from Study
  Country: US (occurrence: US)
  Receive Date: 20220311
  Receipt Date: 20220408
  Transmission Date: 20220721
  Serious: No
  Sender: FDA-Public Use
  Company Number: US-ACADIA PHARMACEUTICALS INC.-ACA-2022-PIM-000596

PATIENT
  Age: 83 Year
  Sex: Female

DRUGS (1)
  1. NUPLAZID [Suspect]
     Active Substance: PIMAVANSERIN TARTRATE
     Indication: Parkinson^s disease
     Dosage: 34 MILLIGRAM, QD
     Route: 048
     Dates: start: 20220125

REACTIONS (6)
  - Diarrhoea [Unknown]
  - Balance disorder [Unknown]
  - Gait disturbance [Unknown]
  - Nausea [Unknown]
  - Nausea [Unknown]
  - Hallucination [Unknown]

NARRATIVE: CASE EVENT DATE: 20220101
